FAERS Safety Report 5912469-1 (Version None)
Quarter: 2008Q4

REPORT INFORMATION
  Report Type: 
  Country: None (occurrence: None)
  Receive Date: 20081007
  Receipt Date: 20081007
  Transmission Date: 20090506
  Serious: Yes (Life-Threatening, Hospitalization)
  Sender: FDA-Public Use
  Company Number: None

PATIENT
  Age: 53 Year
  Sex: Male
  Weight: 89.8122 kg

DRUGS (1)
  1. CYMBALTA [Suspect]
     Dosage: 120 MG DAILY  60 2X DAILY PO
     Route: 048
     Dates: start: 20080129, end: 20080718

REACTIONS (17)
  - ABNORMAL BEHAVIOUR [None]
  - ALTERED VISUAL DEPTH PERCEPTION [None]
  - ANGER [None]
  - BALANCE DISORDER [None]
  - BRAIN INJURY [None]
  - DRUG ADMINISTRATION ERROR [None]
  - IMPRISONMENT [None]
  - JOINT DISLOCATION [None]
  - LEGAL PROBLEM [None]
  - OEDEMA PERIPHERAL [None]
  - ROAD TRAFFIC ACCIDENT [None]
  - SCHOOL REFUSAL [None]
  - SKULL FRACTURE [None]
  - SWELLING [None]
  - VISION BLURRED [None]
  - VISUAL FIELD DEFECT [None]
  - VISUAL IMPAIRMENT [None]
